FAERS Safety Report 11152277 (Version 2)
Quarter: 2015Q3

REPORT INFORMATION
  Report Type: Spontaneous
  Country: US (occurrence: US)
  Receive Date: 20150601
  Receipt Date: 20150710
  Transmission Date: 20151125
  Serious: Yes (Hospitalization, Other)
  Sender: FDA-Public Use
  Company Number: US-PFIZER INC-2015182926

PATIENT
  Age: 51 Year
  Sex: Male

DRUGS (6)
  1. RISPERDAL [Concomitant]
     Active Substance: RISPERIDONE
     Indication: POST-TRAUMATIC STRESS DISORDER
  2. DEPO-TESTOSTERONE [Suspect]
     Active Substance: TESTOSTERONE CYPIONATE
     Indication: ERECTILE DYSFUNCTION
  3. TRAZODONE [Concomitant]
     Active Substance: TRAZODONE HYDROCHLORIDE
     Indication: ANXIETY
     Dosage: UNK
     Dates: start: 1990
  4. RISPERDAL [Concomitant]
     Active Substance: RISPERIDONE
     Indication: ANXIETY
     Dosage: UNK
     Dates: start: 1990
  5. DEPO-TESTOSTERONE [Suspect]
     Active Substance: TESTOSTERONE CYPIONATE
     Indication: HORMONE REPLACEMENT THERAPY
     Dosage: UNK, EVERY 2 WEEKS
     Dates: start: 20140422, end: 20140730
  6. TRAZODONE [Concomitant]
     Active Substance: TRAZODONE HYDROCHLORIDE
     Indication: POST-TRAUMATIC STRESS DISORDER

REACTIONS (1)
  - Pulmonary embolism [Unknown]

NARRATIVE: CASE EVENT DATE: 2014
